FAERS Safety Report 19388604 (Version 1)
Quarter: 2021Q2

REPORT INFORMATION
  Report Type: Spontaneous
  Country: US (occurrence: US)
  Receive Date: 20210607
  Receipt Date: 20210607
  Transmission Date: 20210717
  Serious: No
  Sender: FDA-Public Use
  Company Number: US-PERRIGO-21US004866

PATIENT
  Sex: Male
  Weight: 95.24 kg

DRUGS (3)
  1. MINOXIDIL. [Suspect]
     Active Substance: MINOXIDIL
     Dosage: UNKNOWN, QD
     Route: 061
     Dates: start: 202012, end: 202101
  2. MINOXIDIL. [Suspect]
     Active Substance: MINOXIDIL
     Dosage: UNKNOWN, SINGLE
     Route: 061
     Dates: start: 20210315, end: 20210315
  3. MINOXIDIL. [Suspect]
     Active Substance: MINOXIDIL
     Indication: PRODUCT USED FOR UNKNOWN INDICATION
     Dosage: UNKNOWN, BID
     Route: 061
     Dates: start: 202010, end: 202012

REACTIONS (6)
  - Application site dryness [Recovered/Resolved]
  - Wrong technique in product usage process [Recovered/Resolved]
  - Skin texture abnormal [Recovered/Resolved]
  - Application site pruritus [Not Recovered/Not Resolved]
  - Psoriasis [Recovered/Resolved]
  - Skin exfoliation [Recovered/Resolved]

NARRATIVE: CASE EVENT DATE: 2020
